FAERS Safety Report 16046749 (Version 1)
Quarter: 2019Q2

REPORT INFORMATION
  Report Type: Spontaneous
  Country: US (occurrence: US)
  Receive Date: 20190307
  Receipt Date: 20190307
  Transmission Date: 20190711
  Serious: Yes (Hospitalization, Other)
  Sender: FDA-Public Use
  Company Number: None

PATIENT
  Age: 37 Year
  Sex: Female
  Weight: 63 kg

DRUGS (10)
  1. WELLBUTRIN XL [Concomitant]
     Active Substance: BUPROPION HYDROCHLORIDE
  2. MULTI-VITAMIN [Concomitant]
     Active Substance: .ALPHA.-TOCOPHEROL ACETATE, DL-\ASCORBIC ACID\CYANOCOBALAMIN\FLUORIDE ION\FOLIC ACID\NIACIN\PYRIDOXINE\RIBOFLAVIN\THIAMINE\VITAMIN A\VITAMIN D
  3. TUMERIC [Concomitant]
     Active Substance: HERBALS\TURMERIC
  4. CRANBERRY PILLS [Concomitant]
  5. FISH OIL [Concomitant]
     Active Substance: FISH OIL
  6. COQ10 [Concomitant]
     Active Substance: UBIDECARENONE
  7. ENTYVIO [Suspect]
     Active Substance: VEDOLIZUMAB
     Indication: COLITIS ULCERATIVE
     Dosage: ?          QUANTITY:1 INJECTION(S);OTHER FREQUENCY:EVERY 8 WEEKS;?
     Route: 042
  8. XANAX [Concomitant]
     Active Substance: ALPRAZOLAM
  9. VITAMIN B12 [Concomitant]
     Active Substance: CYANOCOBALAMIN
  10. APRISO [Concomitant]
     Active Substance: MESALAMINE

REACTIONS (7)
  - Headache [None]
  - Colitis ulcerative [None]
  - Hypersensitivity [None]
  - Nosocomial infection [None]
  - Eye swelling [None]
  - Stress [None]
  - Clostridium difficile infection [None]

NARRATIVE: CASE EVENT DATE: 20190125
